FAERS Safety Report 9031361 (Version 1)
Quarter: 2013Q1

REPORT INFORMATION
  Report Type: Spontaneous
  Country: NL (occurrence: NL)
  Receive Date: 20130124
  Receipt Date: 20130124
  Transmission Date: 20140127
  Serious: Yes (Death, Hospitalization, Other)
  Sender: FDA-Public Use
  Company Number: PHHY2013NL005571

PATIENT
  Age: 53 Year
  Sex: Male

DRUGS (3)
  1. VALPROIC ACID [Suspect]
     Dosage: 600 MG, FOUR TIMES A DAY
  2. ESOMEPRAZOLE [Concomitant]
     Dosage: 40 MG, UNK
  3. INSULIN [Concomitant]
     Dosage: ONCE DAILY
     Route: 058

REACTIONS (11)
  - Acute hepatic failure [Fatal]
  - Toxicity to various agents [Fatal]
  - Respiratory distress [Unknown]
  - Multi-organ failure [Unknown]
  - Weight decreased [Unknown]
  - Haemorrhagic diathesis [Unknown]
  - Depressed level of consciousness [Unknown]
  - Varices oesophageal [Unknown]
  - Oesophageal ulcer [Unknown]
  - Anaemia [Unknown]
  - Vomiting [Unknown]
